FAERS Safety Report 5896476-3 (Version None)
Quarter: 2008Q3

REPORT INFORMATION
  Report Type: 
  Country: None (occurrence: None)
  Receive Date: 20080924
  Receipt Date: 20080912
  Transmission Date: 20090109
  Serious: Yes (Life-Threatening, Hospitalization)
  Sender: FDA-Public Use
  Company Number: CZ-PFIZER INC-2008077567

PATIENT
  Age: 33 Year
  Sex: Male

DRUGS (4)
  1. CARBAMAZEPINE [Suspect]
     Dosage: DAILY DOSE:32GRAM
     Route: 048
  2. FLUCONAZOLE [Suspect]
     Dosage: DAILY DOSE:240MG
     Route: 048
  3. NIMESULIDE [Suspect]
     Dosage: DAILY DOSE:1GRAM
     Route: 048
  4. OLANZAPINE [Suspect]
     Dosage: DAILY DOSE:100MG
     Route: 048

REACTIONS (4)
  - COMA [None]
  - CONVULSION [None]
  - DEPRESSION [None]
  - SUICIDE ATTEMPT [None]
